FAERS Safety Report 11459074 (Version 2)
Quarter: 2015Q3

REPORT INFORMATION
  Report Type: Spontaneous
  Country: PL (occurrence: PL)
  Receive Date: 20150904
  Receipt Date: 20150908
  Transmission Date: 20151125
  Serious: Yes (Hospitalization)
  Sender: FDA-Public Use
  Company Number: PL-B.I. PHARMACEUTICALS,INC./RIDGEFIELD-2015-BI-47888PN

PATIENT
  Age: 66 Year
  Sex: Male

DRUGS (2)
  1. SALMETEROL [Suspect]
     Active Substance: SALMETEROL
     Indication: PRODUCT USED FOR UNKNOWN INDICATION
     Dosage: 100 MCG
     Route: 065
  2. SPIRIVA [Suspect]
     Active Substance: TIOTROPIUM BROMIDE MONOHYDRATE
     Indication: PRODUCT USED FOR UNKNOWN INDICATION
     Dosage: 18 MCG
     Route: 055

REACTIONS (10)
  - Chronic obstructive pulmonary disease [Unknown]
  - Tachycardia [Unknown]
  - Irregular breathing [Unknown]
  - Breath sounds abnormal [Unknown]
  - Dyspnoea [Recovered/Resolved]
  - Tachypnoea [Unknown]
  - Obstructive airways disorder [Unknown]
  - Pneumothorax [Unknown]
  - Chronic obstructive pulmonary disease [Unknown]
  - Dyspnoea exertional [Unknown]

NARRATIVE: CASE EVENT DATE: 2014
